FAERS Safety Report 9805322 (Version 1)
Quarter: 2014Q1

REPORT INFORMATION
  Report Type: Spontaneous
  Country: US (occurrence: None)
  Receive Date: 20140108
  Receipt Date: 20140108
  Transmission Date: 20141002
  Serious: Yes (Other)
  Sender: FDA-Public Use
  Company Number: None

PATIENT
  Age: 43 Year
  Sex: Female
  Weight: 72.58 kg

DRUGS (1)
  1. CONCERTA (GENERIC) [Suspect]
     Indication: ATTENTION DEFICIT/HYPERACTIVITY DISORDER
     Route: 048
     Dates: start: 20131208, end: 20131217

REACTIONS (4)
  - Headache [None]
  - Anxiety [None]
  - Drug ineffective [None]
  - Product substitution issue [None]
